FAERS Safety Report 16499749 (Version 4)
Quarter: 2020Q4

REPORT INFORMATION
  Report Type: Report from Study
  Country: US (occurrence: US)
  Receive Date: 20190701
  Receipt Date: 20201127
  Transmission Date: 20210113
  Serious: Yes (Other)
  Sender: FDA-Public Use
  Company Number: PHEH2019US027201

PATIENT
  Sex: Male

DRUGS (2)
  1. COSENTYX [Suspect]
     Active Substance: SECUKINUMAB
     Dosage: 150 MG, QMO
     Route: 058
  2. COSENTYX [Suspect]
     Active Substance: SECUKINUMAB
     Indication: ANKYLOSING SPONDYLITIS
     Dosage: UNK, QMO
     Route: 058

REACTIONS (6)
  - Staphylococcal infection [Recovering/Resolving]
  - Sepsis [Recovering/Resolving]
  - Injection site discomfort [Unknown]
  - Ankylosing spondylitis [Unknown]
  - Fatigue [Unknown]
  - Wrong technique in product usage process [Unknown]
